FAERS Safety Report 13238115 (Version 2)
Quarter: 2017Q2

REPORT INFORMATION
  Report Type: Report from Study
  Country: None (occurrence: US)
  Receive Date: 20170216
  Receipt Date: 20170404
  Transmission Date: 20170830
  Serious: Yes (Other)
  Sender: FDA-Public Use
  Company Number: US-ABBVIE-17P-163-1845273-00

PATIENT
  Age: 58 Year
  Sex: Female

DRUGS (2)
  1. HUMIRA [Suspect]
     Active Substance: ADALIMUMAB
     Indication: RHEUMATOID ARTHRITIS
     Route: 058
     Dates: start: 20160907, end: 201612
  2. HUMIRA [Suspect]
     Active Substance: ADALIMUMAB
     Route: 058
     Dates: start: 20170202

REACTIONS (5)
  - Ovarian cyst [Unknown]
  - Dysstasia [Unknown]
  - Arthralgia [Unknown]
  - Pain [Unknown]
  - Injection site bruising [Unknown]

NARRATIVE: CASE EVENT DATE: 20170202
